FAERS Safety Report 7512936-3 (Version None)
Quarter: 2011Q2

REPORT INFORMATION
  Report Type: 
  Country: None (occurrence: None)
  Receive Date: 20110531
  Receipt Date: 20101130
  Transmission Date: 20111010
  Serious: No
  Sender: FDA-Public Use
  Company Number: US-NOVEN-ALL1-2010-06237

PATIENT
  Sex: Female

DRUGS (2)
  1. DAYTRANA [Suspect]
     Dosage: 10 MG, 1X/DAY:QD
     Route: 062
     Dates: start: 20080101, end: 20080101
  2. DAYTRANA [Suspect]
     Dosage: 10 MG, 1X/DAY:QD
     Route: 062
     Dates: start: 20101129

REACTIONS (5)
  - WEIGHT DECREASED [None]
  - HEADACHE [None]
  - ABDOMINAL PAIN UPPER [None]
  - DECREASED APPETITE [None]
  - PRODUCT QUALITY ISSUE [None]
